FAERS Safety Report 7331078-3 (Version None)
Quarter: 2011Q1

REPORT INFORMATION
  Report Type: 
  Country: None (occurrence: None)
  Receive Date: 20110304
  Receipt Date: 20110222
  Transmission Date: 20110831
  Serious: Yes (Life-Threatening)
  Sender: FDA-Public Use
  Company Number: JP-JNJFOC-20110203119

PATIENT
  Sex: Female

DRUGS (6)
  1. DUROTEP [Concomitant]
     Indication: CANCER PAIN
     Route: 065
  2. OXINORM [Suspect]
     Indication: CANCER PAIN
     Route: 048
  3. LOXONIN [Suspect]
     Indication: PRODUCT USED FOR UNKNOWN INDICATION
     Route: 048
  4. GASTER [Suspect]
     Indication: PRODUCT USED FOR UNKNOWN INDICATION
     Route: 048
  5. OXYCONTIN [Suspect]
     Indication: CANCER PAIN
     Route: 048
  6. FINIBAX [Suspect]
     Indication: PNEUMONIA
     Route: 041

REACTIONS (1)
  - PLATELET COUNT DECREASED [None]
